FAERS Safety Report 23111542 (Version 1)
Quarter: 2023Q4

REPORT INFORMATION
  Report Type: Spontaneous
  Country: US (occurrence: None)
  Receive Date: 20231025
  Receipt Date: 20231025
  Transmission Date: 20240109
  Serious: No
  Sender: FDA-Public Use
  Company Number: None

PATIENT
  Sex: Female

DRUGS (1)
  1. RENFLEXIS [Suspect]
     Active Substance: INFLIXIMAB-ABDA
     Indication: Crohn^s disease
     Dosage: FREQUENCY : MONTHLY;?
     Route: 042
     Dates: start: 202310

REACTIONS (8)
  - Weight increased [None]
  - Peripheral swelling [None]
  - Rash [None]
  - Lip swelling [None]
  - Swelling face [None]
  - Skin abrasion [None]
  - Hypersensitivity [None]
  - Joint swelling [None]
